FAERS Safety Report 23200250 (Version 1)
Quarter: 2023Q4

REPORT INFORMATION
  Report Type: Spontaneous
  Country: US (occurrence: US)
  Receive Date: 20231118
  Receipt Date: 20231118
  Transmission Date: 20240109
  Serious: No
  Sender: FDA-Public Use
  Company Number: US-SA-SAC20231111000227

PATIENT
  Age: 27 Year
  Sex: Male
  Weight: 86.18 kg

DRUGS (1)
  1. DUPIXENT [Suspect]
     Active Substance: DUPILUMAB
     Indication: Eosinophilic oesophagitis
     Dosage: 300 MG, QW
     Route: 058
     Dates: start: 202308

REACTIONS (7)
  - Injection site urticaria [Recovered/Resolved]
  - Condition aggravated [Recovered/Resolved]
  - Throat tightness [Unknown]
  - Dysphagia [Unknown]
  - Urticaria [Recovered/Resolved]
  - Pruritus [Unknown]
  - Therapeutic response shortened [Unknown]

NARRATIVE: CASE EVENT DATE: 20230101
